FAERS Safety Report 13780849 (Version 1)
Quarter: 2017Q3

REPORT INFORMATION
  Report Type: Spontaneous
  Country: FR (occurrence: FR)
  Receive Date: 20170724
  Receipt Date: 20170724
  Transmission Date: 20171127
  Serious: Yes (Hospitalization)
  Sender: FDA-Public Use
  Company Number: FR-ACCORD-056094

PATIENT
  Age: 70 Year
  Sex: Female

DRUGS (4)
  1. CYTARABINE ACCORD [Suspect]
     Active Substance: CYTARABINE
     Indication: B-CELL LYMPHOMA
     Dosage: STRENGTH - 100 MG/ML, TWICE EQUIVALENT TO 3500 MG TWICE
     Route: 042
     Dates: start: 20170430
  2. RITUXIMAB. [Suspect]
     Active Substance: RITUXIMAB
     Indication: B-CELL LYMPHOMA
     Dosage: EQUIVALENT TO 600 MG IN TOTAL DOSE
     Route: 042
     Dates: start: 20170430
  3. OXALIPLATIN ACCORD [Suspect]
     Active Substance: OXALIPLATIN
     Indication: B-CELL LYMPHOMA
     Dosage: STRENGTH - 5 MG/ML, EQUIVALENT TO 175 MG IN TOTAL DOSE
     Route: 042
     Dates: start: 20170430
  4. DEXAMETHASONE. [Suspect]
     Active Substance: DEXAMETHASONE
     Indication: B-CELL LYMPHOMA
     Dosage: THE CYCLE 4 DAY 1
     Dates: start: 20170430

REACTIONS (4)
  - Febrile bone marrow aplasia [Recovered/Resolved]
  - Pyrexia [Recovered/Resolved]
  - Thrombocytopenia [Recovered/Resolved]
  - Off label use [Unknown]

NARRATIVE: CASE EVENT DATE: 20170430
